FAERS Safety Report 11695820 (Version 3)
Quarter: 2016Q1

REPORT INFORMATION
  Report Type: Report from Study
  Country: AR (occurrence: AR)
  Receive Date: 20151104
  Receipt Date: 20160122
  Transmission Date: 20160525
  Serious: Yes (Hospitalization, Other)
  Sender: FDA-Public Use
  Company Number: PHHY2015AR142518

PATIENT
  Age: 73 Year
  Sex: Male

DRUGS (7)
  1. AMLODIPINE [Suspect]
     Active Substance: AMLODIPINE BESYLATE
     Indication: HYPERTENSION
     Dosage: 10 OT, QD
     Route: 065
     Dates: end: 201506
  2. VALSARTAN. [Suspect]
     Active Substance: VALSARTAN
     Indication: HYPERTENSION
     Dosage: 320 OT, QD
     Route: 065
     Dates: end: 201506
  3. EXFORGE [Suspect]
     Active Substance: AMLODIPINE BESYLATE\VALSARTAN
     Indication: PRODUCT USED FOR UNKNOWN INDICATION
     Dosage: UNK
     Route: 065
  4. EXELON PATCH [Suspect]
     Active Substance: RIVASTIGMINE
     Indication: FALL
     Dosage: UNK
     Route: 062
  5. EXELON PATCH [Suspect]
     Active Substance: RIVASTIGMINE
     Indication: MEMORY IMPAIRMENT
  6. METHYLDOPA. [Concomitant]
     Active Substance: METHYLDOPA
     Indication: HYPERTENSION
     Dosage: 500 MG, Q8H
     Route: 065
  7. NEBIVOLOL. [Concomitant]
     Active Substance: NEBIVOLOL
     Indication: HYPERTENSION
     Dosage: 10 MG, QD (1 TABLET DAILY SINCE 5 YEARS AGO)
     Route: 065

REACTIONS (3)
  - Blood pressure increased [Recovered/Resolved]
  - Product use issue [Unknown]
  - Peripheral swelling [Unknown]

NARRATIVE: CASE EVENT DATE: 201506
